FAERS Safety Report 16136715 (Version 16)
Quarter: 2020Q2

REPORT INFORMATION
  Report Type: Report from Study
  Country: US (occurrence: US)
  Receive Date: 20190329
  Receipt Date: 20200422
  Transmission Date: 20200713
  Serious: Yes (Hospitalization)
  Sender: FDA-Public Use
  Company Number: US-ACTELION-A-NJ2019-187513

PATIENT
  Sex: Female
  Weight: 116.1 kg

DRUGS (8)
  1. TREPROSTINIL. [Concomitant]
     Active Substance: TREPROSTINIL
     Dosage: UNK
  2. ADEMPAS [Suspect]
     Active Substance: RIOCIGUAT
     Dosage: UNK
     Route: 048
  3. REMODULIN [Suspect]
     Active Substance: TREPROSTINIL
     Dosage: 14 NG/KG, PER MIN
     Route: 042
  4. REMODULIN [Suspect]
     Active Substance: TREPROSTINIL
     Dosage: 20 UNK
     Route: 065
  5. TADALAFIL. [Concomitant]
     Active Substance: TADALAFIL
     Dosage: 20 MG, BID
  6. OPSUMIT [Suspect]
     Active Substance: MACITENTAN
     Indication: PULMONARY ARTERIAL HYPERTENSION
     Dosage: 10 MG, QD
     Route: 048
  7. ADEMPAS [Suspect]
     Active Substance: RIOCIGUAT
     Indication: PRODUCT USED FOR UNKNOWN INDICATION
     Dosage: 1 MG, TID
     Route: 048
  8. REMODULIN [Suspect]
     Active Substance: TREPROSTINIL
     Indication: PRODUCT USED FOR UNKNOWN INDICATION
     Dosage: 19 NG/KG, PER MIN
     Route: 058

REACTIONS (33)
  - Syncope [Unknown]
  - Catheter site swelling [Unknown]
  - Device dislocation [Unknown]
  - Pruritus [Unknown]
  - Pain [Unknown]
  - Diarrhoea [Unknown]
  - Catheter site pruritus [Unknown]
  - Dizziness [Not Recovered/Not Resolved]
  - Arthralgia [Not Recovered/Not Resolved]
  - Oedema [Unknown]
  - Urinary tract infection [Unknown]
  - Condition aggravated [Unknown]
  - Catheter management [Unknown]
  - Dermatitis contact [Unknown]
  - Feeling abnormal [Unknown]
  - Nausea [Unknown]
  - Weight decreased [Unknown]
  - Device malfunction [Unknown]
  - Pulmonary hypertension [Unknown]
  - Drug therapy [Unknown]
  - Catheter site erythema [Unknown]
  - Pain in extremity [Unknown]
  - Catheter site discharge [Unknown]
  - Dyspnoea [Unknown]
  - Catheter site pain [Unknown]
  - Vomiting [Unknown]
  - Decreased appetite [Unknown]
  - Needle issue [Unknown]
  - Fatigue [Unknown]
  - Hypotension [Unknown]
  - Headache [Not Recovered/Not Resolved]
  - Therapy non-responder [Not Recovered/Not Resolved]
  - Malaise [Not Recovered/Not Resolved]
